FAERS Safety Report 10040609 (Version 1)
Quarter: 2014Q1

REPORT INFORMATION
  Report Type: Spontaneous
  Country: US (occurrence: None)
  Receive Date: 20140326
  Receipt Date: 20140326
  Transmission Date: 20141002
  Serious: Yes (Life-Threatening, Hospitalization, Disabling)
  Sender: FDA-Public Use
  Company Number: None

PATIENT
  Sex: Male
  Weight: 80.74 kg

DRUGS (9)
  1. HUMIRA [Suspect]
     Dosage: 1 SHOT PER?1 TIME ADM?INJECTBLE
     Dates: start: 201310
  2. CLOBESTROL PROPIONA# [Concomitant]
  3. LEVOTHYROXINE [Concomitant]
  4. LISINOPRIL HCTZ [Concomitant]
  5. PREVASTATIN SODIUM [Concomitant]
  6. TAMSULOSIN HCL [Concomitant]
  7. PREDISONE [Concomitant]
  8. VALAM ZANEX [Concomitant]
  9. PAIN MED [Concomitant]

REACTIONS (3)
  - Thyroid disorder [None]
  - Prostatomegaly [None]
  - Pyoderma gangrenosum [None]
